FAERS Safety Report 7624189-6 (Version None)
Quarter: 2011Q3

REPORT INFORMATION
  Report Type: 
  Country: None (occurrence: None)
  Receive Date: 20110720
  Receipt Date: 20110720
  Transmission Date: 20111222
  Serious: Yes (Other)
  Sender: FDA-Public Use
  Company Number: None

PATIENT
  Sex: Male

DRUGS (1)
  1. LANTUS [Suspect]
     Dates: start: 20110419, end: 20110717

REACTIONS (4)
  - PAROSMIA [None]
  - BURNING SENSATION [None]
  - BALANCE DISORDER [None]
  - EAR PAIN [None]
